FAERS Safety Report 6003784-4 (Version None)
Quarter: 2008Q4

REPORT INFORMATION
  Report Type: 
  Country: None (occurrence: None)
  Receive Date: 20081216
  Receipt Date: 20081210
  Transmission Date: 20090506
  Serious: Yes (Life-Threatening, Hospitalization)
  Sender: FDA-Public Use
  Company Number: PHHY2008DE25648

PATIENT
  Sex: Male

DRUGS (2)
  1. EXELON [Suspect]
     Dosage: 4.6 MG/24 HOURS
     Route: 062
     Dates: start: 20080712
  2. EXELON [Suspect]
     Dosage: 9.5 MG/24 HOURS
     Route: 062
     Dates: start: 20080828

REACTIONS (2)
  - BRONCHIAL CARCINOMA [None]
  - METASTASIS [None]
